FAERS Safety Report 10504946 (Version 1)
Quarter: 2014Q3

REPORT INFORMATION
  Report Type: Spontaneous
  Country: US (occurrence: None)
  Receive Date: 20140926
  Receipt Date: 20140926
  Transmission Date: 20150326
  Serious: No
  Sender: FDA-Public Use
  Company Number: 1000068836

PATIENT
  Age: 63 Year
  Sex: Male

DRUGS (8)
  1. VISTARIL (HYDROXYZINE HYDROCHLORIDE) [Concomitant]
     Active Substance: HYDROXYZINE HYDROCHLORIDE
  2. LINZESS [Suspect]
     Active Substance: LINACLOTIDE
     Indication: CONSTIPATION
     Route: 048
     Dates: start: 20140402
  3. OXYBUTYNIN [Concomitant]
     Active Substance: OXYBUTYNIN
  4. SENNA [Concomitant]
     Active Substance: SENNA LEAF\SENNOSIDES\SENNOSIDES A AND B
  5. CRANBERRY. [Concomitant]
     Active Substance: CRANBERRY
  6. OXYCODONE [Concomitant]
     Active Substance: OXYCODONE
  7. MVI (VITAMINS NOS) [Concomitant]
  8. POLYETHYLENE GLYCOL (MACROGOL) [Concomitant]
     Active Substance: POLYETHYLENE GLYCOLS

REACTIONS (4)
  - Constipation [None]
  - Bladder spasm [None]
  - Abdominal pain [None]
  - Proctalgia [None]

NARRATIVE: CASE EVENT DATE: 201406
